FAERS Safety Report 9048887 (Version 1)
Quarter: 2013Q1

REPORT INFORMATION
  Report Type: Spontaneous
  Country: US (occurrence: None)
  Receive Date: 20130116
  Receipt Date: 20130116
  Transmission Date: 20140127
  Serious: Yes (Death)
  Sender: FDA-Public Use
  Company Number: ANI_2013_1099409

PATIENT
  Age: 50 Year
  Sex: Female

DRUGS (4)
  1. METOCLOPRAMIDE [Suspect]
  2. METHADONE [Suspect]
  3. CYCLOBENZAPRINE [Suspect]
  4. LAXATIVE (STIMULANT) [Suspect]

REACTIONS (1)
  - Drug abuse [None]
